FAERS Safety Report 22217248 (Version 1)
Quarter: 2023Q2

REPORT INFORMATION
  Report Type: Spontaneous
  Country: US (occurrence: US)
  Receive Date: 20230417
  Receipt Date: 20230417
  Transmission Date: 20230721
  Serious: Yes (Death, Life-Threatening, Hospitalization, Other)
  Sender: FDA-Public Use
  Company Number: US-MLMSERVICE-20230331-4197251-1

PATIENT
  Age: 63 Year
  Sex: Male

DRUGS (2)
  1. TACROLIMUS [Suspect]
     Active Substance: TACROLIMUS
     Indication: Prophylaxis against graft versus host disease
     Dosage: UNK
  2. MYCOPHENOLATE MOFETIL [Suspect]
     Active Substance: MYCOPHENOLATE MOFETIL
     Indication: Prophylaxis against graft versus host disease
     Dosage: UNK

REACTIONS (11)
  - Hypoxia [Fatal]
  - Encephalopathy [Fatal]
  - Systemic mycosis [Fatal]
  - Meningitis fungal [Fatal]
  - Fungaemia [Fatal]
  - Septic shock [Fatal]
  - Pneumonia fungal [Fatal]
  - Fusarium infection [Fatal]
  - Abscess fungal [Fatal]
  - Endophthalmitis [Recovered/Resolved]
  - Off label use [Unknown]
